FAERS Safety Report 9155382 (Version 1)
Quarter: 2013Q1

REPORT INFORMATION
  Report Type: Spontaneous
  Country: PT (occurrence: PT)
  Receive Date: 20130311
  Receipt Date: 20130311
  Transmission Date: 20140127
  Serious: Yes (Hospitalization)
  Sender: FDA-Public Use
  Company Number: PT-ROCHE-1198830

PATIENT
  Age: 47 Year
  Sex: Female

DRUGS (7)
  1. HERCEPTIN [Suspect]
     Indication: BREAST CANCER METASTATIC
     Route: 042
     Dates: start: 20120409, end: 20120511
  2. HERCEPTIN [Suspect]
     Route: 042
     Dates: start: 20120511, end: 20121130
  3. HERCEPTIN [Suspect]
     Route: 042
     Dates: start: 20121130, end: 20121221
  4. FUROSEMIDE [Concomitant]
     Route: 048
  5. CAPECITABINE [Concomitant]
     Indication: BREAST CANCER METASTATIC
     Route: 048
     Dates: start: 20121130, end: 20130202
  6. PACLITAXEL [Concomitant]
     Indication: BREAST CANCER METASTATIC
     Dosage: POWDER FOR CONCENTRATE FOR SOLUTION FOR INFUSION
     Route: 042
     Dates: start: 20120409, end: 20121026
  7. ESPIRONOLACTONA [Concomitant]
     Route: 048

REACTIONS (5)
  - Vasculitis cerebral [Recovering/Resolving]
  - Nervous system disorder [Recovering/Resolving]
  - VIIth nerve paralysis [Recovering/Resolving]
  - Deep vein thrombosis [Recovering/Resolving]
  - Dysarthria [Recovering/Resolving]
